FAERS Safety Report 6523568-8 (Version None)
Quarter: 2009Q4

REPORT INFORMATION
  Report Type: 
  Country: None (occurrence: None)
  Receive Date: 20091222
  Receipt Date: 20091209
  Transmission Date: 20100525
  Serious: Yes (Other)
  Sender: FDA-Public Use
  Company Number: DSM-2009-01945

PATIENT
  Age: 72 Year
  Sex: Female

DRUGS (4)
  1. VASCOROL (OLMESARTAN MEDOXOMIL/ AMLODIPINE BESILATE) (TABLET) [Suspect]
     Indication: HYPERTENSION
     Dosage: 40/10 MG, ORAL
     Route: 048
     Dates: start: 20091016, end: 20091020
  2. ARTHROTEC (DICLOFENAC SODIUM, MISOPROSTOL) (75, TABLET) (DICLOFENAC SO [Concomitant]
  3. STRUCTUM (CHONDROITIN SULFATE SODIUM) (CHONDROITIN SULFATE SODIUM) [Concomitant]
  4. CONCOR (BISOPROLOL FUMARATE) (10, TABLET) (BISOPROLOL FUMARATE) [Concomitant]

REACTIONS (2)
  - CHEST DISCOMFORT [None]
  - PALPITATIONS [None]
